FAERS Safety Report 7438073-4 (Version None)
Quarter: 2011Q2

REPORT INFORMATION
  Report Type: 
  Country: None (occurrence: None)
  Receive Date: 20110426
  Receipt Date: 20110420
  Transmission Date: 20111010
  Serious: Yes (Life-Threatening, Hospitalization)
  Sender: FDA-Public Use
  Company Number: DE-PFIZER INC-2011086098

PATIENT
  Age: 56 Year
  Sex: Male
  Weight: 132 kg

DRUGS (8)
  1. SOMATROPIN [Suspect]
     Indication: HYPOPITUITARISM
     Dosage: 1.5 MG, 1X/DAY
     Dates: start: 19950411, end: 20100130
  2. LEVOTHYROXINE [Concomitant]
     Indication: PRIMARY HYPOTHYROIDISM
     Dosage: 125 UG, 1X/DAY
     Dates: start: 20051001
  3. TESTOSTERONE [Concomitant]
     Indication: HYPOGONADISM MALE
  4. TESTOSTERONE [Concomitant]
     Indication: BLOOD LUTEINISING HORMONE DECREASED
     Dosage: 250 MG, MONTHLY
     Dates: start: 19800301
  5. LEVOTHYROXINE [Concomitant]
     Indication: BLOOD THYROID STIMULATING HORMONE DECREASED
     Dosage: 75 UG, 1X/DAY
     Dates: start: 19800401
  6. HYDROCORTISONE [Concomitant]
     Indication: BLOOD CORTICOTROPHIN DECREASED
     Dosage: 15 MG, 1X/DAY
     Dates: start: 20050811
  7. VALSARTAN [Concomitant]
     Indication: HYPERTENSION
     Dosage: 160 MG, 1X/DAY
     Dates: start: 20090505
  8. TESTOSTERONE [Concomitant]
     Indication: BLOOD FOLLICLE STIMULATING HORMONE DECREASED
     Dosage: 50 MG, 1X/DAY
     Dates: start: 20030714

REACTIONS (1)
  - PLASMACYTOMA [None]
